FAERS Safety Report 8133081-2 (Version None)
Quarter: 2012Q1

REPORT INFORMATION
  Report Type: 
  Country: None (occurrence: None)
  Receive Date: 20120213
  Receipt Date: 20120207
  Transmission Date: 20120608
  Serious: Yes (Death, Life-Threatening, Hospitalization, Other)
  Sender: FDA-Public Use
  Company Number: PHHY2007NZ011519

PATIENT
  Sex: Male

DRUGS (5)
  1. CLOZARIL [Suspect]
     Indication: SCHIZOPHRENIA
     Dosage: 350 MG, UNK
     Route: 048
     Dates: start: 20060217, end: 20070118
  2. PANTOPRAZOLE [Concomitant]
     Indication: GASTROOESOPHAGEAL REFLUX DISEASE
     Dosage: 40 MG, UNK
     Route: 048
     Dates: start: 20060322
  3. AMIODARONE [Concomitant]
     Indication: ATRIAL FIBRILLATION
     Dosage: 200 MG, UNK
     Route: 048
     Dates: start: 20060322
  4. CLOZARIL [Suspect]
     Dosage: 250 MG, NOCTE
     Route: 048
  5. METOCLOPRAMIDE [Concomitant]
     Indication: HYPERTENSION
     Dosage: 47.5 MG, UNK
     Route: 048
     Dates: start: 20060322

REACTIONS (17)
  - PROSTATE CANCER [None]
  - RHEUMATIC HEART DISEASE [None]
  - AORTIC VALVE INCOMPETENCE [None]
  - CARDIOMEGALY [None]
  - TESTICULAR GERM CELL CANCER METASTATIC [None]
  - SYNCOPE [None]
  - CONGESTIVE CARDIOMYOPATHY [None]
  - NEOPLASM [None]
  - RIGHT VENTRICULAR DYSFUNCTION [None]
  - DILATATION VENTRICULAR [None]
  - SCHIZOPHRENIA, PARANOID TYPE [None]
  - RENAL VEIN THROMBOSIS [None]
  - SINUS TACHYCARDIA [None]
  - PULMONARY EMBOLISM [None]
  - PNEUMOTHORAX [None]
  - VENOUS OCCLUSION [None]
  - VENA CAVA THROMBOSIS [None]
